FAERS Safety Report 19196577 (Version 1)
Quarter: 2021Q2

REPORT INFORMATION
  Report Type: Spontaneous
  Country: US (occurrence: US)
  Receive Date: 20210429
  Receipt Date: 20210429
  Transmission Date: 20210717
  Serious: No
  Sender: FDA-Public Use
  Company Number: US-GLAXOSMITHKLINE-USCH2021AMR020943

PATIENT
  Age: 62 Year
  Sex: Female
  Weight: 93.89 kg

DRUGS (10)
  1. LORATADINE. [Suspect]
     Active Substance: LORATADINE
     Indication: COVID-19
     Dosage: 1 DF, QD
     Route: 050
  2. ATORVASTATIN [Concomitant]
     Active Substance: ATORVASTATIN
     Indication: PRODUCT USED FOR UNKNOWN INDICATION
     Dosage: 200 MG, QD
  3. TYLENOL [Concomitant]
     Active Substance: ACETAMINOPHEN
     Indication: HEADACHE
     Dosage: UNK
  4. METFORMIN HYDROCHLORIDE. [Concomitant]
     Active Substance: METFORMIN HYDROCHLORIDE
     Indication: DIABETES MELLITUS
     Dosage: 1000 MG, BID
  5. LOSARTAN. [Concomitant]
     Active Substance: LOSARTAN
     Indication: PRODUCT USED FOR UNKNOWN INDICATION
     Dosage: 10025 MG, QD
  6. OZEMPIC [Concomitant]
     Active Substance: SEMAGLUTIDE
     Indication: DIABETES MELLITUS
     Dosage: 0.5MG ONCE WEEKLY
  7. BENZONATATE. [Suspect]
     Active Substance: BENZONATATE
     Indication: COUGH
     Dosage: 200 MG, TID
  8. ALBUTEROL. [Suspect]
     Active Substance: ALBUTEROL
     Indication: COVID-19
     Dosage: 2 PUFFS EVERY 4 HOURS
     Route: 050
  9. ADVIL [Concomitant]
     Active Substance: IBUPROFEN
     Indication: PRODUCT USED FOR UNKNOWN INDICATION
     Dosage: 2?200MG PILLS TAKEN TWICE DAILY
  10. LEVEMIR [Concomitant]
     Active Substance: INSULIN DETEMIR
     Indication: DIABETES MELLITUS
     Dosage: 44 UNITS TWICE DAILY

REACTIONS (2)
  - Product use in unapproved indication [Unknown]
  - Off label use [Unknown]
